FAERS Safety Report 8439841-2 (Version None)
Quarter: 2012Q2

REPORT INFORMATION
  Report Type: 
  Country: None (occurrence: None)
  Receive Date: 20120615
  Receipt Date: 20120608
  Transmission Date: 20120825
  Serious: Yes (Hospitalization)
  Sender: FDA-Public Use
  Company Number: FR-SANOFI-AVENTIS-2012SA040929

PATIENT
  Age: 62 Year
  Sex: Female

DRUGS (2)
  1. TAXOTERE [Suspect]
     Route: 042
     Dates: start: 20120502, end: 20120502
  2. TRASTUZUMAB [Suspect]
     Route: 042
     Dates: start: 20120502, end: 20120502

REACTIONS (1)
  - CAPILLARY LEAK SYNDROME [None]
